FAERS Safety Report 10900125 (Version 1)
Quarter: 2015Q1

REPORT INFORMATION
  Report Type: Spontaneous
  Country: US (occurrence: US)
  Receive Date: 20150310
  Receipt Date: 20150310
  Transmission Date: 20150721
  Serious: Yes (Death)
  Sender: FDA-Public Use
  Company Number: US-AMGEN-USASP2015020156

PATIENT
  Age: 41 Year
  Sex: Female

DRUGS (1)
  1. PROLIA [Suspect]
     Active Substance: DENOSUMAB
     Indication: PRODUCT USED FOR UNKNOWN INDICATION
     Dosage: UNK
     Route: 065

REACTIONS (6)
  - Metastases to bone [Fatal]
  - Metastases to the respiratory system [Fatal]
  - Breast cancer female [Fatal]
  - Metastases to liver [Fatal]
  - Metastases to bone marrow [Fatal]
  - Metastases to gastrointestinal tract [Fatal]
